FAERS Safety Report 8335357-2 (Version None)
Quarter: 2012Q2

REPORT INFORMATION
  Report Type: 
  Country: None (occurrence: None)
  Receive Date: 20120503
  Receipt Date: 20120430
  Transmission Date: 20120825
  Serious: Yes (Other)
  Sender: FDA-Public Use
  Company Number: US-ELI_LILLY_AND_COMPANY-US201204010129

PATIENT
  Age: 34 Year
  Sex: Female

DRUGS (9)
  1. BYETTA [Suspect]
     Indication: TYPE 2 DIABETES MELLITUS
     Dosage: UNK
     Route: 058
     Dates: start: 20080101, end: 20120428
  2. ATORVASTATIN CALCIUM [Concomitant]
     Indication: BLOOD CHOLESTEROL INCREASED
     Dosage: UNK
     Route: 048
  3. NEXIUM [Concomitant]
     Indication: GASTROINTESTINAL DISORDER
     Dosage: 40 MG, BID
     Route: 048
  4. BYDUREON [Suspect]
     Indication: TYPE 2 DIABETES MELLITUS
     Dosage: 2 MG, WEEKLY (1/W)
     Route: 058
     Dates: start: 20120429, end: 20120429
  5. SPIRONOLACTONE AND HYDROCHLOROTHIAZIDE [Concomitant]
     Indication: HYPERTENSION
     Dosage: 25 MG, QD
     Route: 048
  6. LABETALOL HCL [Concomitant]
     Indication: HYPERTENSION
     Dosage: 200 MG, BID
     Route: 048
  7. SPIRONOLACTONE [Concomitant]
     Indication: HYPERTENSION
     Dosage: 50 MG, QD
     Route: 048
  8. IBUPROFEN [Concomitant]
     Dosage: 800 MG, TID
     Route: 048
  9. METFORMIN HCL [Concomitant]
     Indication: TYPE 2 DIABETES MELLITUS
     Dosage: 500 MG, BID
     Route: 048

REACTIONS (7)
  - ABDOMINAL PAIN UPPER [None]
  - PHARYNGEAL OEDEMA [None]
  - SWOLLEN TONGUE [None]
  - LIP SWELLING [None]
  - PARAESTHESIA ORAL [None]
  - PALPITATIONS [None]
  - NECK PAIN [None]
